FAERS Safety Report 4867917-5 (Version None)
Quarter: 2005Q4

REPORT INFORMATION
  Report Type: 
  Country: None (occurrence: None)
  Receive Date: 20051227
  Receipt Date: 20051212
  Transmission Date: 20060501
  Serious: Yes (Life-Threatening, Hospitalization, Other)
  Sender: FDA-Public Use
  Company Number: DSA_27542_2005

PATIENT
  Age: 78 Year
  Sex: Male

DRUGS (10)
  1. ENALAPRIL MALEATE [Suspect]
     Indication: TROPONIN INCREASED
     Dosage: 80 MG BID PO
     Route: 048
     Dates: start: 20051124, end: 20051125
  2. ASPIRIN [Suspect]
     Dosage: DF PO
     Route: 048
  3. CLOPIDOGREL BISULFATE [Suspect]
     Indication: TROPONIN INCREASED
     Dosage: 75 MG
     Dates: start: 20051123, end: 20051125
  4. DILTIAZEM HCL [Concomitant]
  5. ZOLADEX [Concomitant]
  6. LITHIUM HYDROXIDE [Concomitant]
  7. OLANZAPINE [Concomitant]
  8. PROMAZINE HCL [Concomitant]
  9. SIMVASTATIN [Concomitant]
  10. VENLAFAXINE HCL [Concomitant]

REACTIONS (3)
  - GASTROINTESTINAL HAEMORRHAGE [None]
  - GASTROINTESTINAL ULCER [None]
  - METASTATIC NEOPLASM [None]
